FAERS Safety Report 12780756 (Version 1)
Quarter: 2016Q3

REPORT INFORMATION
  Report Type: Spontaneous
  Country: JP (occurrence: JP)
  Receive Date: 20160926
  Receipt Date: 20160926
  Transmission Date: 20161109
  Serious: Yes (Life-Threatening, Hospitalization)
  Sender: FDA-Public Use
  Company Number: JP-BAYER-2016-181521

PATIENT
  Age: 79 Year
  Sex: Male

DRUGS (2)
  1. CLOPIDOGREL [Interacting]
     Active Substance: CLOPIDOGREL BISULFATE
     Dosage: 75 MG, UNK
     Route: 048
  2. ACETYLSALICYLIC ACID({=100 MG) [Suspect]
     Active Substance: ASPIRIN
     Dosage: 100 MG, UNK
     Route: 048

REACTIONS (5)
  - Labelled drug-drug interaction medication error [Recovered/Resolved]
  - Upper airway obstruction [Recovered/Resolved]
  - Pharyngeal oedema [Recovered/Resolved]
  - Drug administration error [Recovered/Resolved]
  - Mouth haemorrhage [Recovered/Resolved]
